FAERS Safety Report 13559281 (Version 1)
Quarter: 2017Q2

REPORT INFORMATION
  Report Type: Spontaneous
  Country: GB (occurrence: GB)
  Receive Date: 20170518
  Receipt Date: 20170518
  Transmission Date: 20170830
  Serious: Yes (Disabling)
  Sender: FDA-Public Use
  Company Number: GB-PFIZER INC-2017216861

PATIENT
  Age: 45 Year
  Sex: Female

DRUGS (1)
  1. LINEZOLID. [Suspect]
     Active Substance: LINEZOLID
     Indication: BLOOD CULTURE POSITIVE
     Dosage: 600 MG, UNK
     Route: 048
     Dates: start: 201608, end: 201608

REACTIONS (1)
  - Vestibular disorder [Not Recovered/Not Resolved]
